FAERS Safety Report 19204930 (Version 5)
Quarter: 2021Q2

REPORT INFORMATION
  Report Type: Spontaneous
  Country: DE (occurrence: DE)
  Receive Date: 20210503
  Receipt Date: 20210608
  Transmission Date: 20210717
  Serious: Yes (Death, Other)
  Sender: FDA-Public Use
  Company Number: DE-PFIZER INC-2021482563

PATIENT
  Age: 88 Year
  Sex: Female

DRUGS (1)
  1. METHOTREXATE SODIUM. [Suspect]
     Active Substance: METHOTREXATE SODIUM
     Indication: PSORIASIS
     Dosage: 15 MG, WEEKLY (BY INJECTION)

REACTIONS (12)
  - Contraindicated product administered [Unknown]
  - Acute kidney injury [Unknown]
  - Product prescribing error [Unknown]
  - Condition aggravated [Unknown]
  - Vulvitis [Unknown]
  - Leukopenia [Unknown]
  - Gastrointestinal ulcer [Unknown]
  - Toxicity to various agents [Fatal]
  - Thrombocytopenia [Unknown]
  - Stomatitis [Unknown]
  - Multiple organ dysfunction syndrome [Fatal]
  - Mucosal disorder [Unknown]
